FAERS Safety Report 12341335 (Version 1)
Quarter: 2016Q2

REPORT INFORMATION
  Report Type: Spontaneous
  Country: US (occurrence: None)
  Receive Date: 20160505
  Receipt Date: 20160505
  Transmission Date: 20160815
  Serious: Yes (Disabling)
  Sender: FDA-Public Use
  Company Number: None

PATIENT
  Age: 61 Year
  Sex: Male

DRUGS (1)
  1. OLD SPICE FRESH HIGH ENDURANCE [Suspect]
     Active Substance: ALUMINUM ZIRCONIUM TRICHLOROHYDREX GLY
     Dosage: 1 APPLIC, 2-3 SWIPES UNDER ARMS 1/DAY TOPICAL
     Route: 061
     Dates: end: 20160410

REACTIONS (7)
  - Application site rash [None]
  - Pain of skin [None]
  - Application site pain [None]
  - Blister [None]
  - Application site vesicles [None]
  - Impaired work ability [None]
  - Pruritus [None]

NARRATIVE: CASE EVENT DATE: 201604
